FAERS Safety Report 18508970 (Version 2)
Quarter: 2020Q4

REPORT INFORMATION
  Report Type: Spontaneous
  Country: US (occurrence: US)
  Receive Date: 20201117
  Receipt Date: 20201228
  Transmission Date: 20210114
  Serious: No
  Sender: FDA-Public Use
  Company Number: US-NOVITIUMPHARMA-2020USNVP00114

PATIENT
  Age: 65 Year
  Sex: Female
  Weight: 154 kg

DRUGS (10)
  1. HALOBETASOL PROPIONATE 0.05% [Suspect]
     Active Substance: HALOBETASOL PROPIONATE
     Indication: PRURITUS
  2. TRIAMCINOLONE 0.1% [Suspect]
     Active Substance: TRIAMCINOLONE
     Indication: RASH
  3. HALOBETASOL PROPIONATE 0.05% [Suspect]
     Active Substance: HALOBETASOL PROPIONATE
     Indication: RASH
  4. PREDNISONE TABLETS, USP 10 MG [Suspect]
     Active Substance: PREDNISONE
     Indication: PRURITUS
     Dates: start: 20201018, end: 20201023
  5. PREDNISONE TABLETS, USP 10 MG [Suspect]
     Active Substance: PREDNISONE
     Indication: RASH
     Route: 048
     Dates: start: 20201023, end: 20201029
  6. PREDNISONE TABLETS, USP 10 MG [Suspect]
     Active Substance: PREDNISONE
     Indication: PRURITUS
     Route: 048
     Dates: start: 20201023, end: 20201029
  7. MEDROL [Suspect]
     Active Substance: METHYLPREDNISOLONE
     Indication: RASH
  8. PREDNISONE TABLETS, USP 10 MG [Suspect]
     Active Substance: PREDNISONE
     Indication: RASH
     Dates: start: 20201018, end: 20201023
  9. SYNTHROID [Concomitant]
     Active Substance: LEVOTHYROXINE SODIUM
  10. HALOBETASOL PROPIONATE 0.05% [Suspect]
     Active Substance: HALOBETASOL PROPIONATE
     Indication: RASH

REACTIONS (1)
  - Condition aggravated [Recovering/Resolving]

NARRATIVE: CASE EVENT DATE: 20201016
